FAERS Safety Report 4368127-0 (Version None)
Quarter: 2004Q2

REPORT INFORMATION
  Report Type: 
  Country: None (occurrence: None)
  Receive Date: 20040602
  Receipt Date: 20040518
  Transmission Date: 20050107
  Serious: Yes (Death, Life-Threatening, Disabling)
  Sender: FDA-Public Use
  Company Number: LB-MERCK-0405USA01210

PATIENT
  Age: 39 Year
  Sex: Female

DRUGS (5)
  1. SINTROM [Concomitant]
     Route: 065
  2. CANCIDAS [Suspect]
     Indication: SYSTEMIC CANDIDA
     Route: 042
     Dates: start: 20040409, end: 20040411
  3. CANCIDAS [Suspect]
     Route: 042
     Dates: start: 20040408, end: 20040408
  4. PRIMAXIN [Concomitant]
     Route: 065
  5. VANCOMYCIN [Concomitant]
     Route: 065

REACTIONS (1)
  - GRAFT VERSUS HOST DISEASE [None]
